FAERS Safety Report 6684038-X (Version None)
Quarter: 2010Q2

REPORT INFORMATION
  Report Type: 
  Country: None (occurrence: None)
  Receive Date: 20100416
  Receipt Date: 20100322
  Transmission Date: 20101027
  Serious: No
  Sender: FDA-Public Use
  Company Number: US-JNJFOC-20100306543

PATIENT
  Age: 31 Year
  Sex: Male

DRUGS (7)
  1. INVEGA [Suspect]
     Indication: PSYCHOTIC DISORDER
     Route: 048
  2. INVEGA [Suspect]
     Route: 048
  3. INVEGA [Suspect]
     Route: 048
  4. INVEGA [Suspect]
     Indication: SCHIZOPHRENIA
     Route: 048
  5. INVEGA [Suspect]
     Route: 048
  6. INVEGA [Suspect]
     Route: 048
  7. DEPAKOTE [Concomitant]
     Indication: DRUG USE FOR UNKNOWN INDICATION
     Route: 048

REACTIONS (2)
  - DISTURBANCE IN SOCIAL BEHAVIOUR [None]
  - EXTRAPYRAMIDAL DISORDER [None]
